FAERS Safety Report 6800580-2 (Version None)
Quarter: 2010Q2

REPORT INFORMATION
  Report Type: 
  Country: None (occurrence: None)
  Receive Date: 20100625
  Receipt Date: 20100625
  Transmission Date: 20101027
  Serious: Yes (Other)
  Sender: FDA-Public Use
  Company Number: None

PATIENT
  Age: 73 Year
  Sex: Male
  Weight: 76 kg

DRUGS (4)
  1. WARFARIN SODIUM [Suspect]
     Indication: ATRIAL FIBRILLATION
     Dosage: 2 MG EVERY DAY PO 400 MG BID PO
     Route: 048
     Dates: start: 20091223, end: 20100506
  2. WARFARIN SODIUM [Suspect]
     Indication: MITRAL VALVE INCOMPETENCE
     Dosage: 2 MG EVERY DAY PO 400 MG BID PO
     Route: 048
     Dates: start: 20091223, end: 20100506
  3. WARFARIN SODIUM [Suspect]
     Indication: ATRIAL FIBRILLATION
     Dosage: 2 MG EVERY DAY PO 400 MG BID PO
     Route: 048
     Dates: start: 20100501
  4. WARFARIN SODIUM [Suspect]
     Indication: MITRAL VALVE INCOMPETENCE
     Dosage: 2 MG EVERY DAY PO 400 MG BID PO
     Route: 048
     Dates: start: 20100501

REACTIONS (3)
  - MYALGIA [None]
  - PRODUCT SUBSTITUTION ISSUE [None]
  - PRURITUS [None]
